FAERS Safety Report 4502191-0 (Version None)
Quarter: 2004Q4

REPORT INFORMATION
  Report Type: 
  Country: None (occurrence: None)
  Receive Date: 20041116
  Receipt Date: 20041105
  Transmission Date: 20050328
  Serious: Yes (Hospitalization)
  Sender: FDA-Public Use
  Company Number: FR-ROCHE-385830

PATIENT
  Age: 45 Year
  Sex: Male

DRUGS (1)
  1. INVIRASE [Suspect]
     Indication: HIV INFECTION
     Route: 048

REACTIONS (2)
  - CONDITION AGGRAVATED [None]
  - RENAL FAILURE ACUTE [None]
